FAERS Safety Report 6127006-9 (Version None)
Quarter: 2009Q1

REPORT INFORMATION
  Report Type: 
  Country: None (occurrence: None)
  Receive Date: 20090320
  Receipt Date: 20090203
  Transmission Date: 20090719
  Serious: No
  Sender: FDA-Public Use
  Company Number: US-ABBOTT-09P-163-0501630-00

PATIENT
  Sex: Female
  Weight: 56.75 kg

DRUGS (1)
  1. ERYTHROMYCIN [Suspect]
     Indication: BRONCHITIS
     Route: 048
     Dates: start: 19700101, end: 19700101

REACTIONS (1)
  - NAUSEA [None]
